FAERS Safety Report 12818372 (Version 1)
Quarter: 2016Q4

REPORT INFORMATION
  Report Type: Report from Study
  Country: US (occurrence: US)
  Receive Date: 20161006
  Receipt Date: 20161006
  Transmission Date: 20170207
  Serious: Yes (Other)
  Sender: FDA-Public Use
  Company Number: US-ROCHE-1833664

PATIENT
  Age: 69 Year
  Sex: Female
  Weight: 73.3 kg

DRUGS (34)
  1. IXABEPILONE [Suspect]
     Active Substance: IXABEPILONE
     Dosage: COURSE 10
     Route: 042
     Dates: start: 20111013
  2. CARBOPLATIN. [Suspect]
     Active Substance: CARBOPLATIN
     Indication: ENDOMETRIAL CANCER
     Dosage: OVER 30 MINUTES
     Route: 042
  3. BEVACIZUMAB [Suspect]
     Active Substance: BEVACIZUMAB
     Dosage: COURSE 5
     Route: 042
     Dates: start: 20110630
  4. BEVACIZUMAB [Suspect]
     Active Substance: BEVACIZUMAB
     Dosage: COURSE 10
     Route: 042
     Dates: start: 20111013
  5. IXABEPILONE [Suspect]
     Active Substance: IXABEPILONE
     Dosage: COURSE 2
     Route: 042
     Dates: start: 20110428
  6. IXABEPILONE [Suspect]
     Active Substance: IXABEPILONE
     Dosage: COURSE 15
     Route: 042
     Dates: start: 20120315
  7. IXABEPILONE [Suspect]
     Active Substance: IXABEPILONE
     Dosage: COURSE 16
     Route: 042
     Dates: start: 20120405
  8. BEVACIZUMAB [Suspect]
     Active Substance: BEVACIZUMAB
     Dosage: COURSE 8
     Route: 042
     Dates: start: 20110901
  9. BEVACIZUMAB [Suspect]
     Active Substance: BEVACIZUMAB
     Dosage: COURSE 11
     Route: 042
     Dates: start: 20111110
  10. IXABEPILONE [Suspect]
     Active Substance: IXABEPILONE
     Dosage: COURSE 5
     Route: 042
     Dates: start: 20110630
  11. IXABEPILONE [Suspect]
     Active Substance: IXABEPILONE
     Dosage: COURSE 13
     Route: 042
     Dates: start: 20120105
  12. BEVACIZUMAB [Suspect]
     Active Substance: BEVACIZUMAB
     Indication: ENDOMETRIAL CANCER
     Dosage: OVER 30-90 MINUTES ON DAY 1?COURSE 1
     Route: 042
     Dates: start: 20110324
  13. BEVACIZUMAB [Suspect]
     Active Substance: BEVACIZUMAB
     Dosage: COURSE 12
     Route: 042
     Dates: start: 20111201
  14. BEVACIZUMAB [Suspect]
     Active Substance: BEVACIZUMAB
     Dosage: COURSE 16
     Route: 042
     Dates: start: 20120405
  15. IXABEPILONE [Suspect]
     Active Substance: IXABEPILONE
     Dosage: COURSE 9
     Route: 042
     Dates: start: 20110922
  16. IXABEPILONE [Suspect]
     Active Substance: IXABEPILONE
     Indication: ENDOMETRIAL CANCER
     Dosage: OVER 1 HOUR
     Route: 042
     Dates: start: 20110324
  17. IXABEPILONE [Suspect]
     Active Substance: IXABEPILONE
     Dosage: COURSE 7
     Route: 042
     Dates: start: 20110811
  18. BEVACIZUMAB [Suspect]
     Active Substance: BEVACIZUMAB
     Dosage: COURSE 2
     Route: 042
     Dates: start: 20110428
  19. BEVACIZUMAB [Suspect]
     Active Substance: BEVACIZUMAB
     Dosage: COURSE 6
     Route: 042
     Dates: start: 20110721
  20. BEVACIZUMAB [Suspect]
     Active Substance: BEVACIZUMAB
     Dosage: COURSE 14
     Route: 042
     Dates: start: 20120201
  21. IXABEPILONE [Suspect]
     Active Substance: IXABEPILONE
     Dosage: COURSE 6
     Route: 042
     Dates: start: 20110721
  22. IXABEPILONE [Suspect]
     Active Substance: IXABEPILONE
     Dosage: COURSE 8
     Route: 042
     Dates: start: 20110901
  23. IXABEPILONE [Suspect]
     Active Substance: IXABEPILONE
     Dosage: COURSE 11
     Route: 042
     Dates: start: 20111110
  24. IXABEPILONE [Suspect]
     Active Substance: IXABEPILONE
     Dosage: COURSE 12
     Route: 042
     Dates: start: 20111201
  25. BEVACIZUMAB [Suspect]
     Active Substance: BEVACIZUMAB
     Dosage: COURSE 7
     Route: 042
     Dates: start: 20110811
  26. BEVACIZUMAB [Suspect]
     Active Substance: BEVACIZUMAB
     Dosage: COURSE 15
     Route: 042
     Dates: start: 20120315
  27. IXABEPILONE [Suspect]
     Active Substance: IXABEPILONE
     Dosage: COURSE 4
     Route: 042
     Dates: start: 20110609
  28. IXABEPILONE [Suspect]
     Active Substance: IXABEPILONE
     Dosage: COURSE 14
     Route: 042
     Dates: start: 20120201
  29. BEVACIZUMAB [Suspect]
     Active Substance: BEVACIZUMAB
     Dosage: COURSE 3
     Route: 042
     Dates: start: 20110519
  30. BEVACIZUMAB [Suspect]
     Active Substance: BEVACIZUMAB
     Dosage: COURSE 4
     Route: 042
     Dates: start: 20110609
  31. BEVACIZUMAB [Suspect]
     Active Substance: BEVACIZUMAB
     Dosage: COURSE 9
     Route: 042
     Dates: start: 20110922
  32. BEVACIZUMAB [Suspect]
     Active Substance: BEVACIZUMAB
     Dosage: COURSE 13
     Route: 042
     Dates: start: 20120105
  33. BEVACIZUMAB [Suspect]
     Active Substance: BEVACIZUMAB
     Dosage: COURSE 14
     Route: 042
     Dates: start: 20120201
  34. IXABEPILONE [Suspect]
     Active Substance: IXABEPILONE
     Dosage: COURSE 3
     Route: 042
     Dates: start: 20110519

REACTIONS (10)
  - Blood bilirubin increased [Unknown]
  - Hypocalcaemia [Unknown]
  - Hyponatraemia [Unknown]
  - Platelet count decreased [Unknown]
  - Pneumonitis [Unknown]
  - Neutropenia [Unknown]
  - Neutrophil count decreased [Unknown]
  - Proteinuria [Unknown]
  - Urinary tract infection [Unknown]
  - White blood cell count decreased [Unknown]
